FAERS Safety Report 4922586-0 (Version None)
Quarter: 2006Q1

REPORT INFORMATION
  Report Type: 
  Country: None (occurrence: None)
  Receive Date: 20060224
  Receipt Date: 20060203
  Transmission Date: 20060701
  Serious: Yes (Hospitalization)
  Sender: FDA-Public Use
  Company Number: JP-JPN-A200600468

PATIENT
  Sex: Female

DRUGS (1)
  1. FLUTIDE [Suspect]
     Indication: ASTHMA
     Dosage: 400MCG PER DAY
     Route: 055

REACTIONS (6)
  - BUCCAL MUCOSAL ROUGHENING [None]
  - LOCAL SWELLING [None]
  - MOUTH HAEMORRHAGE [None]
  - SWELLING FACE [None]
  - TONGUE COATED [None]
  - TONGUE ULCERATION [None]
